FAERS Safety Report 16186025 (Version 1)
Quarter: 2019Q2

REPORT INFORMATION
  Report Type: Spontaneous
  Country: US (occurrence: US)
  Receive Date: 20190308
  Receipt Date: 20190308
  Transmission Date: 20190711
  Serious: Yes (Hospitalization, Other)
  Sender: FDA-Public Use
  Company Number: None

PATIENT
  Age: 80 Year
  Sex: Female
  Weight: 60.78 kg

DRUGS (16)
  1. LORAZEPAM. [Concomitant]
     Active Substance: LORAZEPAM
  2. OMEPRAZOLE. [Concomitant]
     Active Substance: OMEPRAZOLE
  3. TACROLIMUS. [Concomitant]
     Active Substance: TACROLIMUS
  4. VITAMIN D3 [Concomitant]
     Active Substance: CHOLECALCIFEROL
  5. ASPIRIN. [Concomitant]
     Active Substance: ASPIRIN
  6. CALCIUM [Concomitant]
     Active Substance: CALCIUM
  7. PROBIOTIC ACIDOPHILUS [Concomitant]
     Active Substance: LACTOBACILLUS ACIDOPHILUS
  8. NITROFURANT [Concomitant]
  9. OMEPRAZOLE. [Concomitant]
     Active Substance: OMEPRAZOLE
  10. CENTRUM VIT [Concomitant]
     Active Substance: VITAMINS
  11. ETOMIDATE. [Suspect]
     Active Substance: ETOMIDATE
     Indication: CARDIOVERSION
     Dates: start: 20190107, end: 20190107
  12. DILTIAZEM CD [Concomitant]
     Active Substance: DILTIAZEM
  13. HYDROCHLOROT [Concomitant]
     Active Substance: HYDROCHLOROTHIAZIDE
  14. CLONIDINE. [Concomitant]
     Active Substance: CLONIDINE
  15. VITAMIN C [Concomitant]
     Active Substance: ASCORBIC ACID
  16. WARFRIN [Concomitant]

REACTIONS (1)
  - Seizure [None]

NARRATIVE: CASE EVENT DATE: 20190107
